FAERS Safety Report 7911460-3 (Version None)
Quarter: 2011Q4

REPORT INFORMATION
  Report Type: 
  Country: None (occurrence: None)
  Receive Date: 20111114
  Receipt Date: 20111103
  Transmission Date: 20120403
  Serious: Yes (Other)
  Sender: FDA-Public Use
  Company Number: US-BRISTOL-MYERS SQUIBB COMPANY-16214256

PATIENT
  Sex: Male

DRUGS (2)
  1. COUMADIN [Suspect]
     Indication: ARRHYTHMIA
     Dates: start: 20110701
  2. ASPIRIN [Concomitant]

REACTIONS (3)
  - PRURITUS [None]
  - HYPOAESTHESIA [None]
  - PAIN [None]
